FAERS Safety Report 9005509 (Version 1)
Quarter: 2013Q1

REPORT INFORMATION
  Report Type: Spontaneous
  Country: US (occurrence: US)
  Receive Date: 20130109
  Receipt Date: 20130109
  Transmission Date: 20140127
  Serious: Yes (Other)
  Sender: FDA-Public Use
  Company Number: US-009507513-1301USA001485

PATIENT
  Sex: Male

DRUGS (3)
  1. SINGULAIR [Suspect]
     Dosage: DAILY
     Route: 048
  2. VANCERIL [Suspect]
     Dosage: 4.00 TOTAL BID INHALATION RESPIRATORY (INHALATION)
  3. ZYRTEC [Suspect]
     Dosage: 5.00 MG TOTAL DAILY
     Route: 048

REACTIONS (1)
  - Visual field defect [Unknown]
